FAERS Safety Report 9274381 (Version 3)
Quarter: 2013Q2

REPORT INFORMATION
  Report Type: Report from Study
  Country: US (occurrence: US)
  Receive Date: 20130506
  Receipt Date: 20130522
  Transmission Date: 20140414
  Serious: Yes (Life-Threatening, Hospitalization)
  Sender: FDA-Public Use
  Company Number: US-MERCK-1305USA001020

PATIENT
  Age: 69 Year
  Sex: Female
  Weight: 88.43 kg

DRUGS (21)
  1. ZOLINZA [Suspect]
     Indication: T-CELL LYMPHOMA
     Dosage: 400 MG, QD
     Route: 048
     Dates: start: 20130222, end: 20130417
  2. ZOLINZA [Suspect]
     Dosage: 300 MG, QD
     Route: 048
     Dates: start: 20130417, end: 20130420
  3. ASPIRIN [Concomitant]
     Indication: CORONARY ARTERY DISEASE
     Dosage: UNK
     Dates: start: 2002
  4. BIOTIN [Concomitant]
     Indication: VITAMIN SUPPLEMENTATION
     Dosage: UNK
     Dates: start: 201207
  5. CEPHALEXIN [Concomitant]
     Indication: PYODERMA
     Dosage: UNK
     Dates: start: 20130329, end: 20130412
  6. CEPHALEXIN [Concomitant]
     Dosage: UNK
     Dates: start: 20130329
  7. DESONIDE [Concomitant]
     Indication: MYCOSIS FUNGOIDES
     Dosage: UNK
     Dates: start: 201201
  8. DIPHENHYDRAMINE HYDROCHLORIDE [Concomitant]
     Indication: INSOMNIA
     Dosage: UNK
     Dates: start: 2012
  9. DOCUSATE SODIUM [Concomitant]
     Indication: CONSTIPATION
     Dosage: UNK
     Dates: start: 2002
  10. FENOFIBRATE [Concomitant]
     Indication: DYSLIPIDAEMIA
     Dosage: UNK
     Dates: start: 20130325
  11. OMEGA-3 MARINE TRIGLYCERIDES [Concomitant]
     Indication: SUPPLEMENTATION THERAPY
     Dosage: UNK
     Dates: start: 2000
  12. GARLIC [Concomitant]
     Indication: SUPPLEMENTATION THERAPY
     Dosage: UNK
     Dates: start: 201207
  13. KETOCONAZOLE [Concomitant]
     Indication: SEBORRHOEIC DERMATITIS
     Dosage: UNK
     Dates: start: 201201
  14. LOSARTIN [Concomitant]
     Indication: HYPERTENSION
     Dosage: UNK
     Dates: start: 201301
  15. METOPROLOL [Concomitant]
     Dosage: UNK
     Dates: start: 201201
  16. SIMVASTATIN [Concomitant]
     Indication: DYSLIPIDAEMIA
     Dosage: UNK
     Dates: start: 20130201
  17. TRAMADOL HYDROCHLORIDE [Concomitant]
     Indication: ARTHRITIS
     Dosage: UNK
     Dates: start: 2009
  18. TRIAMCINOLONE [Concomitant]
     Indication: MYCOSIS FUNGOIDES
     Dosage: UNK
     Dates: start: 201201
  19. ASCORBIC ACID [Concomitant]
     Indication: VITAMIN SUPPLEMENTATION
     Dosage: UNK
     Dates: start: 20130325
  20. ZANTAC [Concomitant]
     Indication: GASTROOESOPHAGEAL REFLUX DISEASE
     Dosage: UNK
     Dates: start: 2008
  21. ZYRTEC [Concomitant]
     Indication: PRURITUS
     Dosage: UNK
     Dates: start: 201211

REACTIONS (1)
  - Pulmonary embolism [Recovered/Resolved]
